FAERS Safety Report 10876921 (Version 1)
Quarter: 2015Q1

REPORT INFORMATION
  Report Type: Spontaneous
  Country: JP (occurrence: JP)
  Receive Date: 20150302
  Receipt Date: 20150302
  Transmission Date: 20150721
  Serious: Yes (Hospitalization, Other)
  Sender: FDA-Public Use
  Company Number: JP-BRISTOL-MYERS SQUIBB COMPANY-BMS-2014-007360

PATIENT
  Age: 66 Year
  Sex: Female
  Weight: 46 kg

DRUGS (5)
  1. 5 FU [Concomitant]
     Active Substance: FLUOROURACIL
     Dosage: 3334 MG, UNK
     Route: 042
     Dates: start: 20140403, end: 20140430
  2. OXALIPLATIN. [Concomitant]
     Active Substance: OXALIPLATIN
     Indication: COLORECTAL CANCER
     Dosage: 118 MG, UNK
     Route: 042
     Dates: start: 20140403, end: 20140430
  3. ERBITUX [Suspect]
     Active Substance: CETUXIMAB
     Indication: COLON CANCER
     Dosage: 5 MG/ML, UNK
     Route: 041
     Dates: start: 20140403, end: 20140430
  4. 5 FU [Concomitant]
     Active Substance: FLUOROURACIL
     Indication: COLORECTAL CANCER
     Dosage: 555 MG, UNK
     Route: 040
     Dates: start: 20140403, end: 20140430
  5. LEVOFOLINATE [Concomitant]
     Active Substance: LEVOLEUCOVORIN CALCIUM
     Indication: COLORECTAL CANCER
     Dosage: 277 MG, UNK
     Route: 042
     Dates: start: 20140403, end: 20140430

REACTIONS (1)
  - Intestinal obstruction [Recovering/Resolving]
